FAERS Safety Report 13598617 (Version 1)
Quarter: 2017Q2

REPORT INFORMATION
  Report Type: Spontaneous
  Country: US (occurrence: US)
  Receive Date: 20170531
  Receipt Date: 20170531
  Transmission Date: 20170830
  Serious: No
  Sender: FDA-Public Use
  Company Number: US-SA-2017SA089732

PATIENT
  Sex: Female

DRUGS (15)
  1. SOLOSTAR-S DELIVERY DEVICE [Concomitant]
     Dates: start: 2017
  2. NALTREXONE [Concomitant]
     Active Substance: NALTREXONE
  3. SOLOSTAR-S DELIVERY DEVICE [Concomitant]
     Dates: start: 2017, end: 2017
  4. NOVOLOG [Concomitant]
     Active Substance: INSULIN ASPART
  5. SOLIQUA 100/33 [Suspect]
     Active Substance: INSULIN GLARGINE\LIXISENATIDE
     Indication: DIABETES MELLITUS
     Dosage: DOSE:30 UNIT(S)
     Route: 065
     Dates: start: 2017
  6. SOLIQUA 100/33 [Suspect]
     Active Substance: INSULIN GLARGINE\LIXISENATIDE
     Indication: DIABETES MELLITUS
     Dosage: DOSE:30 UNIT(S)
     Route: 065
     Dates: start: 2017, end: 2017
  7. VICTOZA [Concomitant]
     Active Substance: LIRAGLUTIDE
  8. VICTOZA [Concomitant]
     Active Substance: LIRAGLUTIDE
     Dates: start: 2017
  9. AMLODIPINE [Concomitant]
     Active Substance: AMLODIPINE BESYLATE
  10. ZOLOFT [Concomitant]
     Active Substance: SERTRALINE HYDROCHLORIDE
  11. MELOXICAM. [Concomitant]
     Active Substance: MELOXICAM
  12. GABAPENTIN. [Concomitant]
     Active Substance: GABAPENTIN
  13. LANTUS [Concomitant]
     Active Substance: INSULIN GLARGINE
     Dates: start: 2017
  14. ATENOLOL. [Concomitant]
     Active Substance: ATENOLOL
  15. ZOLOFT [Concomitant]
     Active Substance: SERTRALINE HYDROCHLORIDE

REACTIONS (7)
  - Appetite disorder [Unknown]
  - Diarrhoea [Unknown]
  - Nausea [Unknown]
  - Feeling abnormal [Unknown]
  - Hyperhidrosis [Unknown]
  - Abdominal discomfort [Unknown]
  - Blood glucose increased [Unknown]

NARRATIVE: CASE EVENT DATE: 2017
